FAERS Safety Report 21488977 (Version 1)
Quarter: 2022Q4

REPORT INFORMATION
  Report Type: Spontaneous
  Country: US (occurrence: US)
  Receive Date: 20221021
  Receipt Date: 20221021
  Transmission Date: 20230113
  Serious: Yes (Hospitalization)
  Sender: FDA-Public Use
  Company Number: US-STRIDES ARCOLAB LIMITED-2022SP013716

PATIENT
  Age: 46 Year
  Sex: Male

DRUGS (1)
  1. PREDNISOLONE [Suspect]
     Active Substance: PREDNISOLONE
     Indication: Sarcoidosis
     Dosage: UNK
     Route: 065

REACTIONS (9)
  - Pulmonary embolism [Recovered/Resolved]
  - Sarcoidosis [Unknown]
  - Condition aggravated [Unknown]
  - Pulmonary fibrosis [Recovered/Resolved]
  - Bronchiectasis [Recovered/Resolved]
  - Haemophilus infection [Unknown]
  - Pneumonia [Recovered/Resolved]
  - Pseudomonas infection [Unknown]
  - Treatment noncompliance [Unknown]
